FAERS Safety Report 7327196-6 (Version None)
Quarter: 2011Q1

REPORT INFORMATION
  Report Type: 
  Country: None (occurrence: None)
  Receive Date: 20110302
  Receipt Date: 20110222
  Transmission Date: 20110831
  Serious: Yes (Other)
  Sender: FDA-Public Use
  Company Number: US-ASTRAZENECA-2011SE10376

PATIENT
  Age: 58 Year
  Sex: Female

DRUGS (5)
  1. PROTONIX [Concomitant]
  2. ZANTAC [Concomitant]
  3. NEXIUM [Concomitant]
  4. ACIPHEX [Concomitant]
  5. PRILOSEC [Suspect]
     Route: 048

REACTIONS (8)
  - DRUG INEFFECTIVE [None]
  - COLON CANCER [None]
  - EPIGASTRIC DISCOMFORT [None]
  - VOMITING [None]
  - DYSPEPSIA [None]
  - CHEST PAIN [None]
  - WEIGHT DECREASED [None]
  - URTICARIA [None]
